FAERS Safety Report 18538651 (Version 1)
Quarter: 2020Q4

REPORT INFORMATION
  Report Type: Spontaneous
  Country: DE (occurrence: DE)
  Receive Date: 20201123
  Receipt Date: 20201123
  Transmission Date: 20210114
  Serious: Yes (Life-Threatening, Other)
  Sender: FDA-Public Use
  Company Number: DE-AUROBINDO-AUR-APL-2020-057336

PATIENT

DRUGS (15)
  1. IFOSFAMIDE. [Suspect]
     Active Substance: IFOSFAMIDE
     Indication: CENTRAL NERVOUS SYSTEM LYMPHOMA
     Dosage: 800 MILLIGRAM/SQ. METER, CYCLICAL, (CYCLE 1-3; 1 CYCLE = 2 WEEKS; DAYS 2-4)
     Route: 042
  2. METHOTREXATE. [Suspect]
     Active Substance: METHOTREXATE
     Indication: CENTRAL NERVOUS SYSTEM LYMPHOMA
     Dosage: 4000 MG/M2 (CYCLE 1-3; 1 CYCLE = 2 WEEKS; DAY 1)
     Route: 042
  3. METHOTREXATE. [Suspect]
     Active Substance: METHOTREXATE
     Dosage: 2.5 MILLIGRAM, (CYCLE 5; 1 CYCLE = 2 WEEKS; DAYS 2-4) WITH PREDNISOLONE
     Route: 065
  4. PREDNISOLONE. [Suspect]
     Active Substance: PREDNISOLONE
     Dosage: 3 MILLIGRAM, CYCLICAL (CYCLE 4+6; 1 CYCLE = 3 WEEKS; DAYS 3-5) WITH MTX
     Route: 065
  5. RITUXIMAB. [Suspect]
     Active Substance: RITUXIMAB
     Indication: CENTRAL NERVOUS SYSTEM LYMPHOMA
     Dosage: 375 MG/M2 (CYCLE 1-3; 1 CYCLE = 2 WEEKS; DAY 0)
     Route: 042
  6. ARA-C [Suspect]
     Active Substance: CYTARABINE
     Dosage: 300 MILLIGRAM/SQ. METER (CYCLE 4+6; 1 CYCLE = 3 WEEKS; DAYS 1-2)
     Route: 042
  7. METHOTREXATE. [Suspect]
     Active Substance: METHOTREXATE
     Dosage: 2.5 MILLIGRAM, (CYCLE 4+6; 1 CYCLE = 3 WEEKS; DAYS 3-5) WITH PREDNISOLONE
     Route: 065
  8. IFOSFAMIDE. [Suspect]
     Active Substance: IFOSFAMIDE
     Dosage: 800 MILLIGRAM/SQ. METER, CYCLICAL, CYCLE 5; 1 CYCLE = 2 WEEKS; DAYS 2-4)
     Route: 042
  9. PREDNISOLONE. [Suspect]
     Active Substance: PREDNISOLONE
     Indication: CENTRAL NERVOUS SYSTEM LYMPHOMA
     Dosage: 3 MILLIGRAM, CYCLICAL, (CYCLE 5; 1 CYCLE = 2 WEEKS; DAYS 2-4) WITH MTX
     Route: 065
  10. SULFAMETHOXAZOLE+TRIMETHOPRIM [Suspect]
     Active Substance: SULFAMETHOXAZOLE\TRIMETHOPRIM
     Indication: PRODUCT USED FOR UNKNOWN INDICATION
     Dosage: UNK UNK, CYCLICAL
     Route: 065
  11. ACICLOVIR [Suspect]
     Active Substance: ACYCLOVIR
     Indication: PRODUCT USED FOR UNKNOWN INDICATION
     Dosage: UNK UNK, CYCLICAL
     Route: 065
  12. ARA-C [Suspect]
     Active Substance: CYTARABINE
     Indication: CENTRAL NERVOUS SYSTEM LYMPHOMA
     Dosage: 10 MG INTRAVENTRICULAR (CYCLE 4+6; 1 CYCLE = 3 WEEKS; DAY 6)
     Route: 065
  13. ARA-C [Suspect]
     Active Substance: CYTARABINE
     Dosage: 10 MG INTRAVENTRICULARINTRAVENTRICULAR (CYCLE 5; 1 CYCLE = 2 WEEKS; DAY 5)
     Route: 065
  14. GRANULOCYTE COLONY STIMULATING FACTOR [Suspect]
     Active Substance: GRANULOCYTE COLONY-STIMULATING FACTOR NOS
     Indication: PROPHYLAXIS
     Dosage: UNK UNK, CYCLICAL
     Route: 065
  15. METHOTREXATE. [Suspect]
     Active Substance: METHOTREXATE
     Dosage: 4000 MG/M2 (CYCLE 5; 1 CYCLE = 2 WEEKS; DAY 1)
     Route: 042

REACTIONS (1)
  - Neutropenia [Unknown]
